FAERS Safety Report 21682917 (Version 10)
Quarter: 2023Q1

REPORT INFORMATION
  Report Type: Report from Study
  Country: CO (occurrence: None)
  Receive Date: 20221205
  Receipt Date: 20230123
  Transmission Date: 20230418
  Serious: Yes (Hospitalization)
  Sender: FDA-Public Use
  Company Number: CO-Eisai Medical Research-EC-2022-129009

PATIENT
  Age: 80 Year
  Sex: Female
  Weight: 50.8 kg

DRUGS (20)
  1. LENVATINIB [Suspect]
     Active Substance: LENVATINIB
     Indication: Hepatocellular carcinoma
     Route: 048
     Dates: start: 20221005
  2. PEMBROLIZUMAB [Suspect]
     Active Substance: PEMBROLIZUMAB
     Indication: Hepatocellular carcinoma
     Dosage: VIBOSTOLIMAB (MK-7684) 200MG + PEMBROLIZUMAB (MK-3475) 200MG
     Route: 042
     Dates: start: 20221005, end: 20221026
  3. VIBOSTOLIMAB [Suspect]
     Active Substance: VIBOSTOLIMAB
     Dosage: VIBOSTOLIMAB (MK-7684) 200MG + PEMBROLIZUMAB (MK-3475) 200MG
     Route: 042
     Dates: start: 20221116, end: 20221116
  4. ALBUTEROL [Concomitant]
     Active Substance: ALBUTEROL
     Dates: start: 19920615, end: 20221124
  5. LOSARTAN [Concomitant]
     Active Substance: LOSARTAN
     Dates: start: 19950615, end: 20221124
  6. ASPIRIN [Concomitant]
     Active Substance: ASPIRIN
     Dates: start: 19950615, end: 20221120
  7. ACETAMINOPHEN [Concomitant]
     Active Substance: ACETAMINOPHEN
     Dates: start: 20210421, end: 20221120
  8. ISOSORBIDE DINITRATE [Concomitant]
     Active Substance: ISOSORBIDE DINITRATE
     Dates: start: 20220615, end: 20221120
  9. LACTULOSE [Concomitant]
     Active Substance: LACTULOSE
     Dates: start: 20220615
  10. SPIRONOLACTONE [Concomitant]
     Active Substance: SPIRONOLACTONE
     Dates: start: 20220615, end: 20221123
  11. TIOTROPIUM BROMIDE [Concomitant]
     Active Substance: TIOTROPIUM BROMIDE
     Dates: start: 20220715, end: 20221120
  12. THEOPHYLLINE [Concomitant]
     Active Substance: THEOPHYLLINE
     Dates: start: 20220715, end: 20221120
  13. BUDESONIDE\FORMOTEROL FUMARATE [Concomitant]
     Active Substance: BUDESONIDE\FORMOTEROL FUMARATE
     Dates: start: 20220715, end: 20221120
  14. CARVEDILOL [Concomitant]
     Active Substance: CARVEDILOL
     Dates: start: 20221012
  15. EMPAGLIFLOZIN;METFORMIN HYDROCHLORIDE [Concomitant]
     Dates: start: 20221012, end: 20221120
  16. GABAPENTIN [Concomitant]
     Active Substance: GABAPENTIN
     Dates: start: 20221012, end: 20221120
  17. ATORVASTATIN [Concomitant]
     Active Substance: ATORVASTATIN
     Dates: start: 20221012, end: 20221120
  18. LEVOTHYROXINE SODIUM [Concomitant]
     Active Substance: LEVOTHYROXINE SODIUM
     Dates: start: 20221027, end: 20221120
  19. CAFFEINE;ISOMETHEPTENE MUCATE;METAMIZOLE SODIUM [Concomitant]
     Dates: start: 20221104, end: 20221116
  20. FLUCONAZOLE [Concomitant]
     Active Substance: FLUCONAZOLE
     Dates: start: 20221104, end: 20221119

REACTIONS (2)
  - Colitis [Recovered/Resolved]
  - Urinary tract infection [Recovered/Resolved]

NARRATIVE: CASE EVENT DATE: 20221114
